FAERS Safety Report 10687863 (Version 2)
Quarter: 2015Q1

REPORT INFORMATION
  Report Type: Spontaneous
  Country: US (occurrence: US)
  Receive Date: 20150102
  Receipt Date: 20150102
  Transmission Date: 20150720
  Serious: No
  Sender: FDA-Public Use
  Company Number: US-MALLINCKRODT-T201403494

PATIENT
  Sex: Male

DRUGS (3)
  1. RISPERDAL [Concomitant]
     Active Substance: RISPERIDONE
     Indication: OBSESSIVE-COMPULSIVE DISORDER
     Dosage: 2 MG, BID
  2. BENZTROPINE [Concomitant]
     Active Substance: BENZTROPINE
     Indication: OBSESSIVE-COMPULSIVE DISORDER
     Dosage: 5 MG, BID
  3. ANAFRANIL [Suspect]
     Active Substance: CLOMIPRAMINE HYDROCHLORIDE
     Indication: OBSESSIVE-COMPULSIVE DISORDER
     Dosage: 50 MG, BID
     Route: 048
     Dates: start: 20140904

REACTIONS (4)
  - Pruritus [Not Recovered/Not Resolved]
  - Blunted affect [Not Recovered/Not Resolved]
  - Abnormal behaviour [Not Recovered/Not Resolved]
  - Tongue movement disturbance [Not Recovered/Not Resolved]
